FAERS Safety Report 8871693 (Version 1)
Quarter: 2012Q4

REPORT INFORMATION
  Report Type: 
  Country: CA (occurrence: CA)
  Receive Date: 20121029
  Receipt Date: 20121029
  Transmission Date: 20130627
  Serious: Yes (Other)
  Sender: FDA-Public Use
  Company Number: PHHY2012CA096381

PATIENT
  Age: 65 Year
  Sex: Female
  Weight: 68 kg

DRUGS (2)
  1. ACLASTA [Suspect]
     Route: 042
  2. REMICADE [Suspect]
     Dosage: 400 mg, 1 every 6 weeks
     Route: 042

REACTIONS (2)
  - Mouth ulceration [Recovered/Resolved]
  - Dyspnoea [Recovered/Resolved]
